FAERS Safety Report 19516950 (Version 1)
Quarter: 2021Q3

REPORT INFORMATION
  Report Type: Spontaneous
  Country: US (occurrence: US)
  Receive Date: 20210711
  Receipt Date: 20210711
  Transmission Date: 20211014
  Serious: No
  Sender: FDA-Public Use
  Company Number: US-ASTRAZENECA-2021A541252

PATIENT
  Sex: Female
  Weight: 59.4 kg

DRUGS (1)
  1. BRILINTA [Suspect]
     Active Substance: TICAGRELOR
     Indication: STENT PLACEMENT
     Route: 048
     Dates: start: 20210409

REACTIONS (6)
  - Dyspnoea [Not Recovered/Not Resolved]
  - Catheter site swelling [Recovered/Resolved]
  - Catheter site pain [Recovered/Resolved]
  - Contusion [Not Recovered/Not Resolved]
  - Insomnia [Unknown]
  - Catheter site discolouration [Not Recovered/Not Resolved]

NARRATIVE: CASE EVENT DATE: 202104
